FAERS Safety Report 7506341-3 (Version None)
Quarter: 2011Q2

REPORT INFORMATION
  Report Type: 
  Country: None (occurrence: None)
  Receive Date: 20110526
  Receipt Date: 20100818
  Transmission Date: 20111010
  Serious: No
  Sender: FDA-Public Use
  Company Number: US-ABBOTT-10P-163-0666326-00

PATIENT
  Sex: Female
  Weight: 51.756 kg

DRUGS (10)
  1. CALCIUM CARBONATE [Concomitant]
     Indication: VITAMIN SUPPLEMENTATION
  2. VITAMIN B6 [Concomitant]
     Indication: VITAMIN SUPPLEMENTATION
  3. IMODIUM [Concomitant]
     Indication: CROHN'S DISEASE
  4. ZINC [Concomitant]
     Indication: MINERAL SUPPLEMENTATION
  5. SODIUM CHLORIDE [Concomitant]
     Indication: FLUID REPLACEMENT
     Route: 042
  6. FISH OIL [Concomitant]
     Indication: MEDICAL DIET
  7. ZEMPLAR [Suspect]
     Indication: VITAMIN SUPPLEMENTATION
     Dates: start: 20100201
  8. CEREFOLIN [Concomitant]
     Indication: MEMORY IMPAIRMENT
  9. FOLIC ACID [Concomitant]
     Indication: VITAMIN SUPPLEMENTATION
  10. ZOLOFT [Concomitant]
     Indication: DEPRESSION

REACTIONS (3)
  - HAEMOGLOBIN DECREASED [None]
  - OROPHARYNGEAL PAIN [None]
  - HAEMATOCRIT DECREASED [None]
